FAERS Safety Report 12650980 (Version 1)
Quarter: 2016Q3

REPORT INFORMATION
  Report Type: Spontaneous
  Country: US (occurrence: US)
  Receive Date: 20160815
  Receipt Date: 20160815
  Transmission Date: 20161109
  Serious: No
  Sender: FDA-Public Use
  Company Number: US-JAZZ-2016-US-005206

PATIENT
  Sex: Female

DRUGS (16)
  1. TOPAMAX [Concomitant]
     Active Substance: TOPIRAMATE
  2. GEODON [Concomitant]
     Active Substance: ZIPRASIDONE HYDROCHLORIDE\ZIPRASIDONE MESYLATE
  3. MERCAPTOPURINE. [Concomitant]
     Active Substance: MERCAPTOPURINE
  4. TRETINOIN. [Concomitant]
     Active Substance: TRETINOIN
  5. XYREM [Suspect]
     Active Substance: SODIUM OXYBATE
     Dosage: 3.75 G, BID
     Route: 048
  6. METFORMIN HCL [Concomitant]
     Active Substance: METFORMIN HYDROCHLORIDE
  7. SPIRONOLACTONE. [Concomitant]
     Active Substance: SPIRONOLACTONE
  8. ABILIFY [Concomitant]
     Active Substance: ARIPIPRAZOLE
  9. LYRICA [Concomitant]
     Active Substance: PREGABALIN
  10. TRINESSA [Concomitant]
     Active Substance: ETHINYL ESTRADIOL\NORGESTIMATE
  11. METHOTREXATE. [Concomitant]
     Active Substance: METHOTREXATE
  12. NUVIGIL [Concomitant]
     Active Substance: ARMODAFINIL
  13. XYREM [Suspect]
     Active Substance: SODIUM OXYBATE
     Indication: NARCOLEPSY
     Dosage: 2.25 G, BID
     Route: 048
     Dates: start: 200309, end: 200310
  14. XYREM [Suspect]
     Active Substance: SODIUM OXYBATE
     Dosage: DOSE ADJUSTMENTS
     Route: 048
  15. CYMBALTA [Concomitant]
     Active Substance: DULOXETINE HYDROCHLORIDE
  16. LASIX [Concomitant]
     Active Substance: FUROSEMIDE

REACTIONS (2)
  - Dizziness [Unknown]
  - Anal incontinence [Not Recovered/Not Resolved]
